FAERS Safety Report 6546161-X (Version None)
Quarter: 2010Q1

REPORT INFORMATION
  Report Type: 
  Country: None (occurrence: None)
  Receive Date: 20100122
  Receipt Date: 20100112
  Transmission Date: 20100710
  Serious: Yes (Other)
  Sender: FDA-Public Use
  Company Number: US-RANBAXY-2010RR-30444

PATIENT
  Age: 85 Year
  Sex: Male

DRUGS (2)
  1. DULOXETINE [Suspect]
     Dosage: 20 MG, UNK
  2. FLUOXETINE [Suspect]
     Dosage: 30 MG, UNK

REACTIONS (2)
  - DRUG INTERACTION [None]
  - SEROTONIN SYNDROME [None]
